FAERS Safety Report 9248528 (Version 1)
Quarter: 2013Q1

REPORT INFORMATION
  Report Type: Spontaneous
  Country: US (occurrence: None)
  Receive Date: 20130305
  Receipt Date: 20130305
  Transmission Date: 20140127
  Serious: Yes (Other)
  Sender: FDA-Public Use
  Company Number: 163-21880-12092240

PATIENT
  Age: 62 Year
  Sex: Male

DRUGS (16)
  1. REVLIMID [Suspect]
     Indication: PLASMA CELL MYELOMA
     Route: 048
     Dates: start: 201203
  2. VIAGRA (SILDENAFIL CITRATE) [Concomitant]
  3. ALLOPURINOL [Concomitant]
  4. AMLODIPINE (AMLODIPINE) [Concomitant]
  5. BENZTROPINE (BENZATROPINE MESILATE) [Concomitant]
  6. CLOPIDOGREL  (CLOPIDOGREL) [Concomitant]
  7. DEXAMETHASONE (DEXAMETHASONE) [Concomitant]
  8. GLUCOSE (GLUCOSE) [Concomitant]
  9. HYDROCODONE (HYDROCODONE) [Concomitant]
  10. NOVOLOG (INSULIN ASPART) [Concomitant]
  11. LANTUS (INSULIN GLARGINE) [Concomitant]
  12. METHYLPRED (METHYLPREDNISOLONE SODIUM) [Concomitant]
  13. OMEGA 3 (FISH OIL) [Concomitant]
  14. PERPHENAZINE (PERPHENAZINE) [Concomitant]
  15. PREDNISOLONE (PREDNISOLONE) [Concomitant]
  16. CRESTOR (ROSUVASTATIN) [Concomitant]

REACTIONS (2)
  - Renal impairment [None]
  - Blood count abnormal [None]
